FAERS Safety Report 19073607 (Version 1)
Quarter: 2021Q1

REPORT INFORMATION
  Report Type: Other
  Country: DE (occurrence: DE)
  Receive Date: 20210330
  Receipt Date: 20210330
  Transmission Date: 20210420
  Serious: Yes (Hospitalization, Other)
  Sender: FDA-Public Use
  Company Number: DE-COLLEGIUM PHARMACEUTICAL, INC.-2021CGM00325

PATIENT
  Age: 75 Year
  Sex: Female

DRUGS (12)
  1. PANTOPRAZOL [PANTOPRAZOLE] [Concomitant]
     Active Substance: PANTOPRAZOLE
  2. ROTIGOTINE [Concomitant]
     Active Substance: ROTIGOTINE
  3. VALSARTAN. [Concomitant]
     Active Substance: VALSARTAN
  4. DULOXETINE. [Suspect]
     Active Substance: DULOXETINE
     Dosage: 30 MG, 1X/DAY
  5. RIVASTIGMIN [RIVASTIGMINE] [Suspect]
     Active Substance: RIVASTIGMINE
     Dosage: 9.5 MG, 1X/DAY
  6. CARBIDOPA/LEVODOPA [Concomitant]
     Active Substance: CARBIDOPA\LEVODOPA
  7. TAPENTADOL [Suspect]
     Active Substance: TAPENTADOL
     Dosage: 50 MG, EVERY 12 HOURS
  8. TROSPIUM [Concomitant]
     Active Substance: TROSPIUM
  9. ROTIGOTINE [Concomitant]
     Active Substance: ROTIGOTINE
  10. RASAGILIN [Suspect]
     Active Substance: RASAGILINE MESYLATE
     Dosage: 1 MG, 1X/DAY
  11. CINNARIZINE; DIMENHYDRINATE [Concomitant]
  12. METOPROLOL. [Concomitant]
     Active Substance: METOPROLOL

REACTIONS (8)
  - Pallor [Unknown]
  - Tremor [Unknown]
  - Product prescribing error [Unknown]
  - Drug interaction [Unknown]
  - Hypertension [Unknown]
  - Asthenia [Unknown]
  - Hypertensive crisis [Unknown]
  - Haematemesis [Unknown]
